FAERS Safety Report 4464575-9 (Version None)
Quarter: 2004Q3

REPORT INFORMATION
  Report Type: 
  Country: None (occurrence: None)
  Receive Date: 20040927
  Receipt Date: 20040916
  Transmission Date: 20050211
  Serious: Yes (Disabling)
  Sender: FDA-Public Use
  Company Number: 2004UW17923

PATIENT
  Age: 32 Year
  Sex: Female

DRUGS (1)
  1. ZOLADEX [Suspect]
     Indication: BREAST NEOPLASM
     Dosage: 3.6 MG MONTH; IM
     Route: 030
     Dates: start: 20040430, end: 20040728

REACTIONS (7)
  - ANGER [None]
  - EMOTIONAL DISORDER [None]
  - HOSTILITY [None]
  - IMPATIENCE [None]
  - METRORRHAGIA [None]
  - MOOD ALTERED [None]
  - OVARIAN MASS [None]
